FAERS Safety Report 9209509 (Version 2)
Quarter: 2013Q2

REPORT INFORMATION
  Report Type: Spontaneous
  Country: BE (occurrence: BE)
  Receive Date: 20130404
  Receipt Date: 20130624
  Transmission Date: 20140414
  Serious: Yes (Death, Hospitalization)
  Sender: FDA-Public Use
  Company Number: BE-CELGENEUS-013-21880-13033630

PATIENT
  Age: 85 Year
  Sex: Female

DRUGS (1)
  1. REVLIMID [Suspect]
     Indication: 5Q MINUS SYNDROME
     Dosage: 5 MILLIGRAM
     Route: 048
     Dates: start: 20110506, end: 20111226

REACTIONS (5)
  - Cerebrovascular accident [Fatal]
  - Acute myeloid leukaemia [Fatal]
  - Pneumonia [Recovered/Resolved with Sequelae]
  - Leukopenia [Fatal]
  - Thrombocytopenia [Fatal]
